FAERS Safety Report 16829417 (Version 1)
Quarter: 2019Q3

REPORT INFORMATION
  Report Type: Spontaneous
  Country: US (occurrence: US)
  Receive Date: 20190919
  Receipt Date: 20190919
  Transmission Date: 20191005
  Serious: No
  Sender: FDA-Public Use
  Company Number: US-AMERICAN REGENT INC-20190839

PATIENT
  Age: 52 Year
  Sex: Male

DRUGS (2)
  1. INJECTAFER [Suspect]
     Active Substance: FERRIC CARBOXYMALTOSE
     Indication: HAEMOGLOBIN DECREASED
     Dosage: UNKNOWN 1 DAYS
     Route: 042
     Dates: start: 20190315, end: 20190315
  2. INJECTAFER [Suspect]
     Active Substance: FERRIC CARBOXYMALTOSE
     Dosage: UNKNOWN
     Route: 042
     Dates: start: 201903, end: 201903

REACTIONS (5)
  - Hypoaesthesia [Unknown]
  - Haemorrhage [Unknown]
  - Injection site discolouration [Not Recovered/Not Resolved]
  - Extravasation [Not Recovered/Not Resolved]
  - Paraesthesia [Unknown]

NARRATIVE: CASE EVENT DATE: 201903
